FAERS Safety Report 5201920-0 (Version None)
Quarter: 2006Q4

REPORT INFORMATION
  Report Type: 
  Country: None (occurrence: None)
  Receive Date: 20061010
  Receipt Date: 20060516
  Transmission Date: 20070319
  Serious: Yes (Hospitalization, Other)
  Sender: FDA-Public Use
  Company Number: 2006-05-1264

PATIENT
  Age: 74 Year
  Sex: Male
  Weight: 83.9154 kg

DRUGS (7)
  1. TEMODAR [Suspect]
     Indication: BRAIN NEOPLASM
     Dosage: 160 MG ORAL
     Route: 048
     Dates: start: 20060210, end: 20060308
  2. LEVOXYL 0.175 [Concomitant]
  3. ATENOLOL [Concomitant]
  4. CLONAZEPAM [Concomitant]
  5. ZOLOFT [Concomitant]
  6. LAMICTAL [Concomitant]
  7. DECADRON [Concomitant]

REACTIONS (1)
  - WHITE BLOOD CELL COUNT DECREASED [None]
